FAERS Safety Report 4990415-5 (Version None)
Quarter: 2006Q2

REPORT INFORMATION
  Report Type: 
  Country: None (occurrence: None)
  Receive Date: 20060427
  Receipt Date: 20060418
  Transmission Date: 20061013
  Serious: Yes (Disabling)
  Sender: FDA-Public Use
  Company Number: GWYE225512DEC05

PATIENT
  Age: 64 Year
  Sex: Male

DRUGS (15)
  1. EFFEXOR XR [Suspect]
     Indication: DEPRESSION
     Dosage: 225MG; 150 MG, GRADUAL REDUCTION
     Route: 048
     Dates: start: 20030701, end: 20050101
  2. EFFEXOR XR [Suspect]
     Indication: DEPRESSION
     Dosage: 225MG; 150 MG, GRADUAL REDUCTION
     Route: 048
     Dates: start: 20050101, end: 20051029
  3. EFFEXOR XR [Suspect]
     Indication: DEPRESSION
     Dosage: 225MG; 150 MG, GRADUAL REDUCTION
     Route: 048
     Dates: start: 20051102, end: 20051101
  4. EFFEXOR XR [Suspect]
     Indication: DEPRESSION
     Dosage: 225MG; 150 MG, GRADUAL REDUCTION
     Route: 048
     Dates: start: 20051101, end: 20051120
  5. LISINOPRIL [Concomitant]
  6. FUROSEMIDE [Concomitant]
  7. PANTOPRAZOLE SODIUM [Concomitant]
  8. CLOPIDOGREL (CLOPIDOGREL) [Concomitant]
  9. LACRI-LUBE (LANOLIN/INERAL OIL LIGHT/PETROLATUM) [Concomitant]
  10. BISOPROSOL (FUMARATE (BISOPROLOL FUMARATE) [Concomitant]
  11. ATORVASTATIN CALCIUM [Concomitant]
  12. ISOSORBIDE MONONITRATE [Concomitant]
  13. STILNOCT (ZOLPIDEM TARTRATE) [Concomitant]
  14. MIRTAZAPINE [Concomitant]
  15. GTN (GLYCERYL TRINITRATE) [Concomitant]

REACTIONS (5)
  - DRUG DOSE OMISSION [None]
  - DRUG WITHDRAWAL SYNDROME [None]
  - DYSPHASIA [None]
  - DYSTONIA [None]
  - FACIAL PALSY [None]
